FAERS Safety Report 14213093 (Version 2)
Quarter: 2017Q4

REPORT INFORMATION
  Report Type: Spontaneous
  Country: JP (occurrence: JP)
  Receive Date: 20171122
  Receipt Date: 20171207
  Transmission Date: 20180321
  Serious: Yes (Hospitalization)
  Sender: FDA-Public Use
  Company Number: JP-GLAXOSMITHKLINE-JP2017JPN168118

PATIENT
  Sex: Female

DRUGS (6)
  1. LAMICTAL [Suspect]
     Active Substance: LAMOTRIGINE
     Dosage: 50 MG, QD
     Route: 048
     Dates: start: 20171011, end: 20171019
  2. WYPAX [Concomitant]
     Active Substance: LORAZEPAM
     Indication: IRRITABILITY
     Dosage: 0.5 MG, QD
     Dates: start: 20171013
  3. WYPAX [Concomitant]
     Active Substance: LORAZEPAM
     Dosage: 1.5 MG, 1D
  4. LENDORMIN [Concomitant]
     Active Substance: BROTIZOLAM
     Indication: INSOMNIA
     Dosage: 0.25 MG, QD
     Dates: start: 20170330
  5. LAMICTAL [Suspect]
     Active Substance: LAMOTRIGINE
     Indication: BIPOLAR DISORDER
     Dosage: 25 MG, QOD
     Route: 048
     Dates: start: 20170930
  6. VALPROATE SODIUM. [Concomitant]
     Active Substance: VALPROATE SODIUM
     Indication: BIPOLAR DISORDER
     Dosage: 200 MG, QD
     Dates: start: 20170824

REACTIONS (3)
  - Eczema [Recovering/Resolving]
  - Drug titration error [Unknown]
  - Lip erosion [Recovering/Resolving]

NARRATIVE: CASE EVENT DATE: 20171011
